FAERS Safety Report 5393283-5 (Version None)
Quarter: 2007Q3

REPORT INFORMATION
  Report Type: 
  Country: None (occurrence: None)
  Receive Date: 20070723
  Receipt Date: 20070716
  Transmission Date: 20080115
  Serious: Yes (Other)
  Sender: FDA-Public Use
  Company Number: PHBS2007DK12060

PATIENT
  Age: 62 Year
  Sex: Female
  Weight: 66 kg

DRUGS (3)
  1. BONDRONAT [Suspect]
     Indication: METASTASES TO BONE
  2. XELODA [Concomitant]
     Dosage: 1300 MG, BID
     Dates: start: 20060629
  3. ZOMETA [Suspect]
     Indication: METASTASES TO BONE
     Dosage: UNK, TIW
     Route: 042
     Dates: start: 20070207, end: 20070327

REACTIONS (1)
  - OSTEONECROSIS [None]
